FAERS Safety Report 11814147 (Version 1)
Quarter: 2015Q4

REPORT INFORMATION
  Report Type: Spontaneous
  Country: US (occurrence: None)
  Receive Date: 20151208
  Receipt Date: 20151208
  Transmission Date: 20160305
  Serious: No
  Sender: FDA-Public Use
  Company Number: None

PATIENT
  Sex: Female

DRUGS (1)
  1. XALKORI [Suspect]
     Active Substance: CRIZOTINIB
     Indication: LUNG NEOPLASM MALIGNANT
     Route: 048
     Dates: start: 20151108

REACTIONS (10)
  - Orthostatic hypotension [None]
  - Visual impairment [None]
  - Micturition urgency [None]
  - Peripheral coldness [None]
  - Fatigue [None]
  - Nausea [None]
  - Decreased appetite [None]
  - Dysgeusia [None]
  - Feeling hot [None]
  - Constipation [None]
